FAERS Safety Report 19167435 (Version 1)
Quarter: 2021Q2

REPORT INFORMATION
  Report Type: Spontaneous
  Country: ID (occurrence: ID)
  Receive Date: 20210422
  Receipt Date: 20210422
  Transmission Date: 20210717
  Serious: Yes (Hospitalization)
  Sender: FDA-Public Use
  Company Number: ID-TEVA-2021-ID-1904379

PATIENT
  Age: 27 Year
  Sex: Female

DRUGS (5)
  1. DOXORUBICIN [Suspect]
     Active Substance: DOXORUBICIN
     Indication: SYNOVIAL SARCOMA METASTATIC
     Dosage: RECEIVED 3 CYCLES
     Route: 065
  2. DOXORUBICIN [Suspect]
     Active Substance: DOXORUBICIN
     Indication: MALIGNANT MEDIASTINAL NEOPLASM
  3. IFOSFAMIDE. [Suspect]
     Active Substance: IFOSFAMIDE
     Indication: SYNOVIAL SARCOMA METASTATIC
     Dosage: RECEIVED 3 CYCLES
     Route: 065
  4. IFOSFAMIDE. [Suspect]
     Active Substance: IFOSFAMIDE
     Indication: MALIGNANT MEDIASTINAL NEOPLASM
  5. MESNA. [Suspect]
     Active Substance: MESNA
     Indication: CHEMOTHERAPY SIDE EFFECT PROPHYLAXIS
     Route: 065

REACTIONS (7)
  - Nausea [Unknown]
  - Vomiting [Unknown]
  - Anaemia [Unknown]
  - Drug ineffective [Unknown]
  - Aphthous ulcer [Unknown]
  - Leukopenia [Unknown]
  - Candida infection [Unknown]
